FAERS Safety Report 6484548-4 (Version None)
Quarter: 2009Q4

REPORT INFORMATION
  Report Type: 
  Country: None (occurrence: None)
  Receive Date: 20091209
  Receipt Date: 20090529
  Transmission Date: 20100525
  Serious: No
  Sender: FDA-Public Use
  Company Number: US-AMGEN-KDL349203

PATIENT
  Sex: Female

DRUGS (1)
  1. ENBREL [Suspect]
     Indication: RHEUMATOID ARTHRITIS
     Route: 058

REACTIONS (9)
  - COUGH [None]
  - CYST [None]
  - ERYTHEMA [None]
  - INJECTION SITE PAIN [None]
  - MELANOCYTIC NAEVUS [None]
  - OROPHARYNGEAL PAIN [None]
  - PURULENT DISCHARGE [None]
  - RASH MACULAR [None]
  - RHEUMATOID ARTHRITIS [None]
